FAERS Safety Report 21438244 (Version 1)
Quarter: 2022Q4

REPORT INFORMATION
  Report Type: Spontaneous
  Country: DK (occurrence: DK)
  Receive Date: 20221011
  Receipt Date: 20221011
  Transmission Date: 20230113
  Serious: Yes (Hospitalization)
  Sender: FDA-Public Use
  Company Number: None

PATIENT
  Age: 81 Year
  Sex: Male
  Weight: 62 kg

DRUGS (2)
  1. PROLIA [Suspect]
     Active Substance: DENOSUMAB
     Indication: Osteoporosis
     Dosage: STRENGTH: 60 MG/ML
     Route: 058
     Dates: start: 20220822
  2. VENOFER [Concomitant]
     Active Substance: IRON SUCROSE
     Indication: Nephrogenic anaemia
     Dosage: UNK
     Dates: start: 20220712

REACTIONS (1)
  - Hypophosphataemia [Not Recovered/Not Resolved]

NARRATIVE: CASE EVENT DATE: 20220903
